FAERS Safety Report 19411766 (Version 1)
Quarter: 2021Q2

REPORT INFORMATION
  Report Type: Spontaneous
  Country: US (occurrence: US)
  Receive Date: 20210614
  Receipt Date: 20210614
  Transmission Date: 20210717
  Serious: Yes (Other)
  Sender: FDA-Public Use
  Company Number: US-GLAXOSMITHKLINE-US2021GSK127132

PATIENT
  Sex: Male

DRUGS (6)
  1. RANITIDINE. [Suspect]
     Active Substance: RANITIDINE
     Indication: PROSTATE CANCER
     Dosage: UNK, QD
     Route: 065
     Dates: start: 201601, end: 201601
  2. ZANTAC [Suspect]
     Active Substance: RANITIDINE HYDROCHLORIDE
     Indication: PROSTATE CANCER
     Dosage: UNKNOWN AT THIS TIME BOTH
     Route: 065
     Dates: start: 199911, end: 201601
  3. RANITIDINE. [Suspect]
     Active Substance: RANITIDINE
     Indication: PROSTATE CANCER
     Dosage: UNK, QD
     Route: 065
     Dates: start: 201601, end: 201601
  4. ZANTAC [Suspect]
     Active Substance: RANITIDINE HYDROCHLORIDE
     Indication: PROSTATE CANCER
     Dosage: UNKNOWN AT THIS TIME BOTH
     Route: 065
     Dates: start: 199911, end: 201601
  5. RANITIDINE. [Suspect]
     Active Substance: RANITIDINE
     Indication: PROSTATE CANCER
     Dosage: UNK, QD
     Route: 065
     Dates: start: 201601, end: 201601
  6. RANITIDINE CAPSULE [Suspect]
     Active Substance: RANITIDINE
     Indication: PROSTATE CANCER
     Dosage: UNK, QD
     Route: 065
     Dates: start: 201601, end: 201601

REACTIONS (1)
  - Prostate cancer [Unknown]
